FAERS Safety Report 10138205 (Version 2)
Quarter: 2014Q2

REPORT INFORMATION
  Report Type: Spontaneous
  Country: FR (occurrence: FR)
  Receive Date: 20140429
  Receipt Date: 20140429
  Transmission Date: 20141212
  Serious: Yes (Hospitalization)
  Sender: FDA-Public Use
  Company Number: FR-SA-2014SA040287

PATIENT
  Age: 66 Year
  Sex: Male

DRUGS (4)
  1. FASTURTEC [Suspect]
     Indication: BLOOD URIC ACID INCREASED
     Dosage: IN ONE ADMINISTRATION
     Route: 042
     Dates: start: 201311, end: 20131205
  2. MABTHERA [Concomitant]
  3. ALL OTHER THERAPEUTIC PRODUCTS [Concomitant]
  4. ALL OTHER THERAPEUTIC PRODUCTS [Concomitant]

REACTIONS (4)
  - Drug ineffective [Recovered/Resolved]
  - Transaminases increased [Recovered/Resolved]
  - Aspartate aminotransferase increased [Recovered/Resolved]
  - Alanine aminotransferase increased [Recovered/Resolved]
